FAERS Safety Report 13569763 (Version 1)
Quarter: 2017Q2

REPORT INFORMATION
  Report Type: Spontaneous
  Country: None (occurrence: CA)
  Receive Date: 20170522
  Receipt Date: 20170522
  Transmission Date: 20170830
  Serious: Yes (Other)
  Sender: FDA-Public Use
  Company Number: CA-MERZ NORTH AMERICA, INC.-17MRZ-00169

PATIENT

DRUGS (11)
  1. CESAMET [Suspect]
     Active Substance: NABILONE
     Indication: PAIN
     Dosage: 2 CAPSULES (1 DOSAGE FORMS, 2 IN 1 D)
  2. TEGRETOL [Suspect]
     Active Substance: CARBAMAZEPINE
     Indication: PAIN
  3. OXYCONTIN [Suspect]
     Active Substance: OXYCODONE HYDROCHLORIDE
     Indication: PAIN
  4. CODEINE CONTIN [Suspect]
     Active Substance: CODEINE SULFATE
     Indication: PAIN
  5. TORADOL [Suspect]
     Active Substance: KETOROLAC TROMETHAMINE
     Indication: PAIN
  6. CELEBREX [Suspect]
     Active Substance: CELECOXIB
     Indication: PAIN
  7. FENTANYL. [Suspect]
     Active Substance: FENTANYL
     Indication: PAIN
     Route: 062
  8. XEOMIN [Suspect]
     Active Substance: INCOBOTULINUMTOXINA
     Indication: PAIN
     Dosage: (1 IN 1 TOTAL)
     Route: 030
  9. AMITRIPTYLINE [Suspect]
     Active Substance: AMITRIPTYLINE
     Dosage: 0.2 MG/M2
  10. CAFFEINE. [Suspect]
     Active Substance: CAFFEINE
     Indication: PAIN
  11. HYDROMORPHONE [Suspect]
     Active Substance: HYDROMORPHONE
     Indication: PAIN
     Route: 048

REACTIONS (2)
  - Off label use [Unknown]
  - Drug use disorder [Unknown]
